FAERS Safety Report 9816059 (Version 4)
Quarter: 2014Q1

REPORT INFORMATION
  Report Type: Report from Study
  Country: IL (occurrence: IL)
  Receive Date: 20140114
  Receipt Date: 20140211
  Transmission Date: 20141002
  Serious: Yes (Hospitalization)
  Sender: FDA-Public Use
  Company Number: IL-ROCHE-1176164

PATIENT
  Age: 74 Year
  Sex: Male
  Weight: 127.2 kg

DRUGS (27)
  1. VISMODEGIB [Suspect]
     Indication: BASAL CELL CARCINOMA
     Dosage: LAST DOSE PRIOR TO SAE: 22/DEC/2012
     Route: 048
     Dates: start: 20121004, end: 20121222
  2. VICTOZA [Concomitant]
     Indication: DIABETES MELLITUS
     Dosage: DOSE: 6 MG/ML
     Route: 065
     Dates: start: 201206, end: 20121222
  3. LEVEMIR [Concomitant]
     Indication: DIABETES MELLITUS
     Route: 065
     Dates: start: 201206, end: 20121222
  4. GLUCOPHAGE [Concomitant]
     Indication: DIABETES MELLITUS
     Route: 065
     Dates: start: 201206, end: 20121222
  5. HUMALOG INSULIN [Concomitant]
     Indication: DIABETES MELLITUS
     Route: 065
     Dates: start: 201206, end: 20121222
  6. DISOTHIAZIDE [Concomitant]
     Indication: HYPERTENSION
     Route: 065
     Dates: start: 201201, end: 20121222
  7. NORMITEN [Concomitant]
     Indication: HYPERTENSION
     Route: 065
     Dates: start: 200201, end: 20121222
  8. ENALADEX [Concomitant]
     Indication: HYPERTENSION
     Route: 065
     Dates: start: 200201, end: 20121222
  9. LIPITOR [Concomitant]
     Indication: HYPERLIPIDAEMIA
     Route: 065
     Dates: start: 199001, end: 20121222
  10. LIPITOR [Concomitant]
     Route: 065
     Dates: start: 20130402
  11. LANSOPRAZOLE [Concomitant]
     Indication: DYSPEPSIA
     Route: 065
     Dates: start: 20130117
  12. PRAMIN (ISRAEL) [Concomitant]
     Indication: NAUSEA
     Route: 065
     Dates: start: 20121231
  13. ENALAPRIL [Concomitant]
     Indication: HYPERTENSION
     Route: 065
     Dates: start: 20130104
  14. ATENOLOL [Concomitant]
     Indication: HYPERTENSION
     Route: 065
     Dates: start: 20130104
  15. ASPIRIN [Concomitant]
     Indication: PROPHYLAXIS
     Route: 065
     Dates: start: 20130104, end: 20130310
  16. ASPIRIN [Concomitant]
     Dosage: MICROPIRIN
     Route: 065
     Dates: start: 200401, end: 20121222
  17. ASPIRIN [Concomitant]
     Route: 065
     Dates: start: 20130402
  18. ATORVASTATIN [Concomitant]
     Indication: HYPERCHOLESTEROLAEMIA
     Route: 065
     Dates: start: 20130104, end: 20130322
  19. AMOXICILLIN [Concomitant]
     Indication: GASTRITIS
     Route: 065
     Dates: start: 20130322, end: 20130401
  20. AMOXICILLIN [Concomitant]
     Indication: OESOPHAGEAL INFECTION
     Route: 065
     Dates: start: 20130806, end: 20130811
  21. AMOXICILLIN [Concomitant]
     Indication: TOOTHACHE
  22. ALFUZOSIN [Concomitant]
     Indication: BENIGN PROSTATIC HYPERPLASIA
     Route: 065
     Dates: start: 20130303
  23. METOCLOPRAMIDE [Concomitant]
     Indication: VOMITING
     Route: 065
     Dates: start: 20131114
  24. BEVITEX [Concomitant]
     Indication: PROPHYLAXIS
     Route: 065
     Dates: start: 200601, end: 20121222
  25. METAMIZOLE [Concomitant]
     Indication: TOOTHACHE
     Route: 065
     Dates: start: 20130801, end: 20130808
  26. ALGOLYSIN FORTE [Concomitant]
     Indication: TOOTHACHE
     Route: 065
     Dates: start: 20130801, end: 20130808
  27. MICROPIRIN [Concomitant]
     Route: 065
     Dates: start: 200401, end: 20121222

REACTIONS (1)
  - Dehydration [Recovered/Resolved]
